FAERS Safety Report 10025287 (Version 1)
Quarter: 2014Q1

REPORT INFORMATION
  Report Type: Spontaneous
  Country: US (occurrence: None)
  Receive Date: 20140319
  Receipt Date: 20140319
  Transmission Date: 20141002
  Serious: Yes (Other)
  Sender: FDA-Public Use
  Company Number: None

PATIENT
  Age: 79 Year
  Sex: Female

DRUGS (2)
  1. FORTEO [Suspect]
     Route: 058
     Dates: start: 20130801
  2. FORTEO [Suspect]
     Route: 058
     Dates: start: 20130801

REACTIONS (3)
  - Pancreatitis [None]
  - Arthralgia [None]
  - Bone pain [None]
